FAERS Safety Report 20736836 (Version 1)
Quarter: 2022Q2

REPORT INFORMATION
  Report Type: Spontaneous
  Country: US (occurrence: US)
  Receive Date: 20220421
  Receipt Date: 20220421
  Transmission Date: 20220721
  Serious: No
  Sender: FDA-Public Use
  Company Number: US-PFIZER INC-202100999249

PATIENT
  Age: 63 Year
  Sex: Male

DRUGS (5)
  1. CHANTIX [Suspect]
     Active Substance: VARENICLINE TARTRATE
     Indication: Smoking cessation therapy
     Dosage: 1 MG(0.5MG 11 TABLETS, THEN 3 CONTINUOUS WEEKS OF 1 MG AT 42 TABLETS)
     Dates: start: 2020
  2. CHANTIX [Suspect]
     Active Substance: VARENICLINE TARTRATE
     Dosage: 1 MG(0.5MG 11 TABLETS, THEN 3 CONTINUOUS WEEKS OF 1 MG AT 42 TABLETS)
     Dates: start: 2020
  3. METFORMIN [Concomitant]
     Active Substance: METFORMIN HYDROCHLORIDE
     Indication: Diabetes mellitus
     Dosage: 1000 MG, 2X/DAY(1,000MG ONE IN THE MORNING AND ONE IN THE EVENING.)
     Dates: start: 202107
  4. ROSUVASTATIN [Concomitant]
     Active Substance: ROSUVASTATIN
     Indication: Blood cholesterol increased
     Dosage: 10 MG
     Dates: start: 202107
  5. MONTELUKAST [Concomitant]
     Active Substance: MONTELUKAST SODIUM
     Indication: Chronic obstructive pulmonary disease
     Dosage: 10 MG, 1X/DAY(10MG ONCE DAILY)
     Dates: start: 2020

REACTIONS (2)
  - Weight decreased [Unknown]
  - Recalled product administered [Unknown]
